FAERS Safety Report 6437830-0 (Version None)
Quarter: 2009Q4

REPORT INFORMATION
  Report Type: 
  Country: None (occurrence: None)
  Receive Date: 20091112
  Receipt Date: 20091029
  Transmission Date: 20100525
  Serious: Yes (Hospitalization)
  Sender: FDA-Public Use
  Company Number: SE-GENENTECH-293537

PATIENT
  Age: 84 Year
  Sex: Male

DRUGS (5)
  1. RITUXIMAB [Suspect]
     Indication: MALIGNANT LYMPHOID NEOPLASM
     Dosage: UNK
     Route: 065
     Dates: start: 20090701, end: 20090801
  2. CALCICHEW D3 [Concomitant]
     Indication: DRUG USE FOR UNKNOWN INDICATION
  3. LEVOTHYROXINE SODIUM [Concomitant]
     Indication: DRUG USE FOR UNKNOWN INDICATION
  4. LASIX [Concomitant]
     Indication: DRUG USE FOR UNKNOWN INDICATION
  5. SELOKEN [Concomitant]
     Indication: DRUG USE FOR UNKNOWN INDICATION

REACTIONS (1)
  - ALVEOLITIS [None]
